FAERS Safety Report 6221726-3 (Version None)
Quarter: 2009Q2

REPORT INFORMATION
  Report Type: 
  Country: None (occurrence: None)
  Receive Date: 20090608
  Receipt Date: 20090527
  Transmission Date: 20091009
  Serious: Yes (Death, Other)
  Sender: FDA-Public Use
  Company Number: GXKR2009US06290

PATIENT
  Age: 69 Year
  Sex: Female
  Weight: 104 kg

DRUGS (20)
  1. MINOXIDIL [Suspect]
     Indication: HYPERTENSION
     Dosage: 2.5 MG/DAY, ORAL
     Route: 048
  2. VANCOMYCIN [Suspect]
     Indication: URINARY TRACT INFECTION
     Dosage: 500 MG, Q12H, INTRAVENOUS
     Route: 042
  3. ENALAPRIL MALEATE [Suspect]
     Indication: HYPERTENSION
     Dosage: 2.5 MG, BID, ORAL
     Route: 048
  4. CLOPIDOGREL [Suspect]
     Dosage: 75 MG/DAY, ORAL
     Route: 048
  5. CEFEPIME [Suspect]
     Indication: URINARY TRACT INFECTION
     Dosage: 1 G/DAY, INTRAVENOUS
     Route: 042
  6. ALLOPURINOL [Concomitant]
  7. ASPIRIN [Concomitant]
  8. CLONIDINE [Concomitant]
  9. DOXERCALCIFEROL (DOXERCALCIFEROL) [Concomitant]
  10. FOLIC ACID [Concomitant]
  11. PANTOPRAZOLE SODIUM [Concomitant]
  12. PAROXETINE HCL [Concomitant]
  13. RISPERIDONE [Concomitant]
  14. SIMVASTATIN [Concomitant]
  15. VALSARTAN [Concomitant]
  16. MULTIVITAMINS (ASCORBIC ACID, ERGOCALCIFEROL, FOLIC ACID, NICOTINAMIDE [Concomitant]
  17. ACETAMINOPHEN [Concomitant]
  18. ACETAMINOPHEN [Concomitant]
  19. EPOETIN ALFA (EPOETIN ALFA) [Concomitant]
  20. FOSINOPRIL SODIUM [Concomitant]

REACTIONS (9)
  - ANGIOEDEMA [None]
  - CARDIO-RESPIRATORY ARREST [None]
  - GENERAL PHYSICAL HEALTH DETERIORATION [None]
  - HAEMODIALYSIS [None]
  - LIP HAEMORRHAGE [None]
  - SEPSIS [None]
  - SKIN NECROSIS [None]
  - STEVENS-JOHNSON SYNDROME [None]
  - TOXIC EPIDERMAL NECROLYSIS [None]
